FAERS Safety Report 9813767 (Version 1)
Quarter: 2014Q1

REPORT INFORMATION
  Report Type: Spontaneous
  Country: US (occurrence: None)
  Receive Date: 20140109
  Receipt Date: 20140109
  Transmission Date: 20141002
  Serious: Yes (Hospitalization)
  Sender: FDA-Public Use
  Company Number: None

PATIENT
  Age: 58 Year
  Sex: Female
  Weight: 76 kg

DRUGS (5)
  1. DECITABINE [Suspect]
     Indication: MYELODYSPLASTIC SYNDROME
     Dates: start: 20131111
  2. ACYCLOVIR [Concomitant]
  3. CIPROFLOXACIN [Concomitant]
  4. MAGIC MOUTHWASH [Concomitant]
  5. MULTI-VITAMIN [Concomitant]

REACTIONS (2)
  - Febrile neutropenia [None]
  - Pneumonia fungal [None]
